FAERS Safety Report 9456508 (Version 3)
Quarter: 2014Q2

REPORT INFORMATION
  Report Type: Spontaneous
  Country: DE (occurrence: None)
  Receive Date: 20130809
  Receipt Date: 20140521
  Transmission Date: 20141212
  Serious: Yes (Hospitalization)
  Sender: FDA-Public Use
  Company Number: JPI-P-034209

PATIENT
  Age: 62 Year
  Sex: Male

DRUGS (4)
  1. XYREM [Suspect]
     Indication: PRODUCT USED FOR UNKNOWN INDICATION
     Dosage: 9 GM (4.5 GM, 2 IN 1 D),ORAL
     Route: 048
     Dates: start: 20121220
  2. DECODERM TRI (DEXTROMETHOPRAN HYDROBROMIDE) [Concomitant]
  3. ONPREZ (ALL OTHER THERAPEUTIC PRODUCTS) [Concomitant]
  4. CICLOPOLI (CICLOPIROX) [Concomitant]

REACTIONS (1)
  - Inguinal hernia [None]
